FAERS Safety Report 13030828 (Version 1)
Quarter: 2016Q4

REPORT INFORMATION
  Report Type: Spontaneous
  Country: US (occurrence: US)
  Receive Date: 20161215
  Receipt Date: 20161215
  Transmission Date: 20170207
  Serious: No
  Sender: FDA-Public Use
  Company Number: US-BAUSCH-BL-2016-016549

PATIENT
  Age: 71 Year
  Sex: Female
  Weight: 73.55 kg

DRUGS (4)
  1. APRISO [Suspect]
     Active Substance: MESALAMINE
     Indication: GASTROINTESTINAL DISORDER
  2. COLESTIPOL [Suspect]
     Active Substance: COLESTIPOL
     Indication: GASTROINTESTINAL DISORDER
     Route: 048
     Dates: start: 20160624, end: 20160708
  3. APRISO [Suspect]
     Active Substance: MESALAMINE
     Indication: COLITIS
     Route: 048
     Dates: start: 20160624, end: 20160708
  4. APRISO [Suspect]
     Active Substance: MESALAMINE
     Indication: DIVERTICULITIS

REACTIONS (4)
  - Rash pruritic [Not Recovered/Not Resolved]
  - Papule [Not Recovered/Not Resolved]
  - Erythema [Not Recovered/Not Resolved]
  - Arthropod bite [Recovered/Resolved]

NARRATIVE: CASE EVENT DATE: 20160707
